FAERS Safety Report 6535782-6 (Version None)
Quarter: 2010Q1

REPORT INFORMATION
  Report Type: 
  Country: None (occurrence: None)
  Receive Date: 20100113
  Receipt Date: 20100104
  Transmission Date: 20100710
  Serious: Yes (Death)
  Sender: FDA-Public Use
  Company Number: AE-GENENTECH-296707

PATIENT

DRUGS (1)
  1. METALYSE [Suspect]
     Indication: MYOCARDIAL INFARCTION
     Dosage: ^30-50 MG^, SINGLE
     Route: 040

REACTIONS (1)
  - DEATH [None]
